FAERS Safety Report 17293585 (Version 3)
Quarter: 2021Q1

REPORT INFORMATION
  Report Type: Other
  Country: CA (occurrence: CA)
  Receive Date: 20200121
  Receipt Date: 20210204
  Transmission Date: 20210419
  Serious: Yes (Other)
  Sender: FDA-Public Use
  Company Number: CA-ROCHE-2524572

PATIENT
  Sex: Female

DRUGS (13)
  1. ALEVE [Concomitant]
     Active Substance: NAPROXEN SODIUM
  2. ACETYLSALICYLIC ACID [Concomitant]
     Active Substance: ASPIRIN
  3. LEUCOVORIN. [Concomitant]
     Active Substance: LEUCOVORIN
  4. OLMETEC [Concomitant]
     Active Substance: OLMESARTAN MEDOXOMIL
  5. CRESTOR [Concomitant]
     Active Substance: ROSUVASTATIN CALCIUM
     Indication: BLOOD CHOLESTEROL INCREASED
  6. RITUXAN [Suspect]
     Active Substance: RITUXIMAB
     Indication: RHEUMATOID ARTHRITIS
     Route: 042
     Dates: start: 20091126, end: 20200915
  7. ARAVA [Concomitant]
     Active Substance: LEFLUNOMIDE
  8. NEXIUM [Concomitant]
     Active Substance: ESOMEPRAZOLE MAGNESIUM
  9. SOLU?MEDROL [Concomitant]
     Active Substance: METHYLPREDNISOLONE SODIUM SUCCINATE
     Indication: PREMEDICATION
     Route: 042
     Dates: start: 20091126
  10. BENADRYL [Concomitant]
     Active Substance: DIPHENHYDRAMINE HYDROCHLORIDE
     Indication: PREMEDICATION
     Route: 048
     Dates: start: 20091126
  11. JENTADUETO [Concomitant]
     Active Substance: LINAGLIPTIN\METFORMIN HYDROCHLORIDE
  12. PLAQUENIL [Concomitant]
     Active Substance: HYDROXYCHLOROQUINE SULFATE
  13. CANDESARTAN. [Concomitant]
     Active Substance: CANDESARTAN

REACTIONS (6)
  - Blood glucose increased [Recovered/Resolved]
  - Sciatica [Unknown]
  - Osteoporosis [Not Recovered/Not Resolved]
  - Blood cholesterol increased [Unknown]
  - Chest pain [Unknown]
  - Dyspnoea [Unknown]
